FAERS Safety Report 5367652-3 (Version None)
Quarter: 2007Q2

REPORT INFORMATION
  Report Type: 
  Country: None (occurrence: None)
  Receive Date: 20070622
  Receipt Date: 20070109
  Transmission Date: 20071010
  Serious: No
  Sender: FDA-Public Use
  Company Number: US-ASTRAZENECA-2007UW00451

PATIENT
  Age: 67 Year
  Sex: Female
  Weight: 52.2 kg

DRUGS (11)
  1. PULMICORT RESPULES [Suspect]
     Indication: EMPHYSEMA
     Dosage: 0.25 MG/2 ML
     Route: 055
  2. DUONEB [Concomitant]
  3. ALBUTEROL [Concomitant]
  4. SPIRIVA [Concomitant]
  5. OXYGEN [Concomitant]
  6. ATENOLOL [Concomitant]
  7. SYNTHROID [Concomitant]
  8. PRAVACHOL [Concomitant]
  9. ASPIRIN [Concomitant]
  10. XANAX [Concomitant]
  11. PREDNISONE TAB [Concomitant]

REACTIONS (1)
  - FEELING ABNORMAL [None]
